FAERS Safety Report 9025214 (Version 1)
Quarter: 2013Q1

REPORT INFORMATION
  Report Type: Spontaneous
  Country: US (occurrence: US)
  Receive Date: 20130122
  Receipt Date: 20130122
  Transmission Date: 20140127
  Serious: Yes (Hospitalization, Other)
  Sender: FDA-Public Use
  Company Number: US-ABBOTT-13P-163-1038529-00

PATIENT
  Sex: Male
  Weight: 86.26 kg

DRUGS (3)
  1. ANDROGEL [Suspect]
     Indication: BLOOD TESTOSTERONE DECREASED
     Dosage: FOUR  PUMP ACTUATIONS PER DAY
     Dates: start: 2012
  2. ANDROGEL [Suspect]
     Dosage: TWO PUMP ACTUATIONS PER DY
     Dates: start: 2012, end: 2012
  3. LIPITOR [Concomitant]
     Indication: BLOOD CHOLESTEROL INCREASED

REACTIONS (7)
  - Osteoarthritis [Recovered/Resolved]
  - Rash [Recovering/Resolving]
  - Incorrect dose administered [Recovered/Resolved]
  - Dry skin [Not Recovered/Not Resolved]
  - Fatigue [Not Recovered/Not Resolved]
  - Joint injury [Not Recovered/Not Resolved]
  - Blood testosterone decreased [Recovered/Resolved]
